FAERS Safety Report 19371597 (Version 1)
Quarter: 2021Q2

REPORT INFORMATION
  Report Type: Spontaneous
  Country: JO (occurrence: JO)
  Receive Date: 20210604
  Receipt Date: 20210604
  Transmission Date: 20210717
  Serious: Yes (Death, Other)
  Sender: FDA-Public Use
  Company Number: JO-SA-2021SA183077

PATIENT
  Sex: Male

DRUGS (1)
  1. MYOZYME [Suspect]
     Active Substance: ALGLUCOSIDASE ALFA
     Indication: GLYCOGEN STORAGE DISEASE TYPE II
     Dosage: UNK
     Dates: end: 202105

REACTIONS (2)
  - Pyrexia [Fatal]
  - Cardiac failure [Fatal]

NARRATIVE: CASE EVENT DATE: 20210530
